FAERS Safety Report 8788596 (Version 1)
Quarter: 2012Q4

REPORT INFORMATION
  Report Type: 
  Country: US (occurrence: US)
  Receive Date: 20120914
  Receipt Date: 20120914
  Transmission Date: 20130627
  Serious: No
  Sender: FDA-Public Use
  Company Number: US-VERTEX PHARMACEUTICAL INC.-AE-2012-011023

PATIENT
  Age: 49 Year
  Sex: Male
  Weight: 86.8 kg

DRUGS (8)
  1. INCIVEK [Suspect]
     Indication: HEPATITIS C
     Route: 048
     Dates: start: 20120706
  2. RIBAPAK [Suspect]
     Indication: HEPATITIS C
     Route: 048
     Dates: start: 20120706
  3. PEGASYS [Suspect]
     Indication: HEPATITIS C
     Route: 058
     Dates: start: 20120706
  4. MILK THISTLE [Concomitant]
     Route: 048
  5. METFORMIN [Suspect]
     Route: 048
  6. FISH OIL [Concomitant]
  7. CITALOPRAM [Concomitant]
     Route: 048
  8. VITAMIN [Concomitant]
     Route: 048

REACTIONS (6)
  - Hypoglycaemia [Recovered/Resolved]
  - Dizziness [Unknown]
  - Fatigue [Unknown]
  - Rash pruritic [Recovered/Resolved]
  - Diarrhoea [Not Recovered/Not Resolved]
  - Proctalgia [Not Recovered/Not Resolved]
